FAERS Safety Report 10395262 (Version 1)
Quarter: 2014Q1

REPORT INFORMATION
  Report Type: Spontaneous
  Country: US (occurrence: None)
  Receive Date: 20130606
  Receipt Date: 20130606
  Transmission Date: 20141002
  Serious: No
  Sender: FDA-Public Use
  Company Number: 2012PROUSA02201

PATIENT
  Age: 68 Year
  Sex: Male
  Weight: 76.61 kg

DRUGS (7)
  1. PROVENGE (SIPULEUCEL-T) SUSPENSION, 250ML [Suspect]
     Indication: PROSTATE CANCER METASTATIC
     Route: 042
     Dates: start: 20120921, end: 20120921
  2. DILAUDID (HYDROMORPHONE HYDROCHLORIDE) [Concomitant]
  3. COUMADIN (WARFARIN SODIUM) [Concomitant]
  4. CALCIUM + VITAMIN D (CALCIUM LACTATE, CALCIUM PHOSPHATE, COLECALCIFEROL) [Concomitant]
  5. FENTANYL (FENTANYL CITRATE) PATCH [Concomitant]
  6. MEGACE (MEGESTROL ACETATE) TABLET [Concomitant]
  7. OXYCODONE [Concomitant]

REACTIONS (5)
  - Culture positive [None]
  - Medical device complication [None]
  - Oxygen saturation decreased [None]
  - Chills [None]
  - Back pain [None]
